FAERS Safety Report 4588169-X (Version None)
Quarter: 2005Q1

REPORT INFORMATION
  Report Type: 
  Country: None (occurrence: None)
  Receive Date: 20050221
  Receipt Date: 20050210
  Transmission Date: 20050727
  Serious: Yes (Hospitalization)
  Sender: FDA-Public Use
  Company Number: US-GLAXOSMITHKLINE-A0544947A

PATIENT
  Age: 56 Year
  Sex: Female

DRUGS (2)
  1. LAMICTAL [Suspect]
     Indication: BIPOLAR DISORDER
     Route: 048
  2. KLONOPIN [Concomitant]

REACTIONS (5)
  - DRUG INEFFECTIVE [None]
  - EMOTIONAL DISORDER [None]
  - EYE IRRITATION [None]
  - SKIN LESION [None]
  - VISION BLURRED [None]
